FAERS Safety Report 13552777 (Version 1)
Quarter: 2017Q2

REPORT INFORMATION
  Report Type: Spontaneous
  Country: US (occurrence: US)
  Receive Date: 20170516
  Receipt Date: 20170516
  Transmission Date: 20170830
  Serious: Yes (Death)
  Sender: FDA-Public Use
  Company Number: None

PATIENT
  Age: 71 Year
  Sex: Male

DRUGS (2)
  1. NUPLAZID [Suspect]
     Active Substance: PIMAVANSERIN TARTRATE
     Indication: PARKINSON^S DISEASE
     Route: 048
     Dates: start: 20161018, end: 20170509
  2. FENTANYL. [Concomitant]
     Active Substance: FENTANYL

REACTIONS (2)
  - Parkinson^s disease [None]
  - Disease complication [None]

NARRATIVE: CASE EVENT DATE: 20170509
